FAERS Safety Report 21186607 (Version 6)
Quarter: 2024Q4

REPORT INFORMATION
  Report Type: Report from Study
  Country: US (occurrence: US)
  Receive Date: 20220808
  Receipt Date: 20241216
  Transmission Date: 20250115
  Serious: Yes (Hospitalization, Other)
  Sender: TAKEDA
  Company Number: US-TAKEDA-US202026946

PATIENT
  Age: 67 Year
  Sex: Female

DRUGS (2)
  1. HUMAN IMMUNOGLOBULIN G [Suspect]
     Active Substance: HUMAN IMMUNOGLOBULIN G
     Indication: Primary immunodeficiency syndrome
     Dosage: 12 GRAM, 1/WEEK
  2. HUMAN IMMUNOGLOBULIN G [Suspect]
     Active Substance: HUMAN IMMUNOGLOBULIN G
     Indication: Immunodeficiency common variable
     Dosage: UNK

REACTIONS (18)
  - Spinal compression fracture [Unknown]
  - Ear pain [Unknown]
  - Ear discomfort [Not Recovered/Not Resolved]
  - Smoke sensitivity [Unknown]
  - Nasal congestion [Not Recovered/Not Resolved]
  - Headache [Not Recovered/Not Resolved]
  - COVID-19 [Unknown]
  - Seasonal allergy [Unknown]
  - Illness [Unknown]
  - Tinnitus [Unknown]
  - Malaise [Unknown]
  - Varices oesophageal [Unknown]
  - Ear inflammation [Unknown]
  - Sinus disorder [Not Recovered/Not Resolved]
  - Dyspnoea [Unknown]
  - Arthralgia [Not Recovered/Not Resolved]
  - Nausea [Unknown]
  - Anxiety [Unknown]

NARRATIVE: CASE EVENT DATE: 20201201
